FAERS Safety Report 5961579-1 (Version None)
Quarter: 2008Q4

REPORT INFORMATION
  Report Type: 
  Country: None (occurrence: None)
  Receive Date: 20081121
  Receipt Date: 20081118
  Transmission Date: 20090506
  Serious: Yes (Other)
  Sender: FDA-Public Use
  Company Number: B0547191A

PATIENT
  Age: 58 Year
  Sex: Female

DRUGS (5)
  1. SAWACILLIN [Suspect]
     Indication: HELICOBACTER INFECTION
     Dosage: 500MG THREE TIMES PER DAY
     Route: 048
     Dates: start: 20080619, end: 20080625
  2. TAKEPRON [Suspect]
     Indication: HELICOBACTER INFECTION
     Dosage: 30MG TWICE PER DAY
     Route: 048
     Dates: start: 20080619, end: 20080625
  3. CLARITHROMYCIN [Suspect]
     Indication: HELICOBACTER INFECTION
     Dosage: 400MG TWICE PER DAY
     Route: 048
     Dates: start: 20080619, end: 20080625
  4. EPINASTINE HYDROCHLORIDE [Concomitant]
     Route: 048
     Dates: start: 20080220
  5. LIPITOR [Concomitant]
     Dosage: 10MG PER DAY
     Route: 048
     Dates: start: 20080220

REACTIONS (6)
  - DIARRHOEA [None]
  - DRUG ERUPTION [None]
  - PHARYNGEAL OEDEMA [None]
  - RASH [None]
  - SWOLLEN TONGUE [None]
  - TRACHEAL OEDEMA [None]
